FAERS Safety Report 13008128 (Version 4)
Quarter: 2017Q2

REPORT INFORMATION
  Report Type: Other
  Country: KR (occurrence: KR)
  Receive Date: 20161208
  Receipt Date: 20170404
  Transmission Date: 20170830
  Serious: Yes (Death)
  Sender: FDA-Public Use
  Company Number: KR-APOTEX-2016AP015598

PATIENT
  Sex: Male

DRUGS (3)
  1. LAFUTIDINE [Suspect]
     Active Substance: LAFUTIDINE
     Indication: ULCER
     Route: 048
  2. CILOSTAZOL. [Suspect]
     Active Substance: CILOSTAZOL
     Indication: ARTERIAL OCCLUSIVE DISEASE
     Route: 048
  3. PAXIL CR [Suspect]
     Active Substance: PAROXETINE HYDROCHLORIDE
     Indication: PRODUCT USED FOR UNKNOWN INDICATION
     Dosage: 12.5 MG, UNK
     Route: 048

REACTIONS (2)
  - Toxic epidermal necrolysis [Fatal]
  - Cholestatic liver injury [Fatal]
